FAERS Safety Report 4881754-7 (Version None)
Quarter: 2006Q1

REPORT INFORMATION
  Report Type: 
  Country: None (occurrence: None)
  Receive Date: 20060116
  Receipt Date: 20060106
  Transmission Date: 20060701
  Serious: Yes (Other)
  Sender: FDA-Public Use
  Company Number: DK-ABBOTT-06P-044-0321435-00

PATIENT
  Age: 83 Year
  Sex: Male

DRUGS (3)
  1. DEPAKENE [Suspect]
     Indication: EPILEPSY
     Dosage: RETARD AND DROPLETS FORMS
     Route: 065
     Dates: start: 19990101, end: 20040201
  2. DOXAZOSIN [Concomitant]
     Indication: BLADDER DISORDER
     Dosage: RETARD
     Route: 065
     Dates: start: 20000101, end: 20020101
  3. DIPYRIDAMOLE [Concomitant]
     Indication: PLATELET AGGREGATION INHIBITION
     Dosage: RETARD
     Route: 065
     Dates: start: 20000101, end: 20030101

REACTIONS (3)
  - APATHY [None]
  - APHASIA [None]
  - DEMENTIA [None]
